FAERS Safety Report 16560598 (Version 1)
Quarter: 2019Q3

REPORT INFORMATION
  Report Type: Spontaneous
  Country: US (occurrence: US)
  Receive Date: 20190711
  Receipt Date: 20190711
  Transmission Date: 20191004
  Serious: No
  Sender: FDA-Public Use
  Company Number: US-009507513-1906USA004941

PATIENT
  Age: 27 Year
  Sex: Male

DRUGS (3)
  1. AMPHOTERICIN B. [Concomitant]
     Active Substance: AMPHOTERICIN B
  2. NOXAFIL [Suspect]
     Active Substance: POSACONAZOLE
     Indication: COCCIDIOIDOMYCOSIS
  3. NOXAFIL [Suspect]
     Active Substance: POSACONAZOLE
     Indication: COCCIDIOIDOMYCOSIS

REACTIONS (1)
  - Off label use [Unknown]
